FAERS Safety Report 25949802 (Version 2)
Quarter: 2025Q4

REPORT INFORMATION
  Report Type: Spontaneous
  Country: US (occurrence: US)
  Receive Date: 20251022
  Receipt Date: 20251117
  Transmission Date: 20260119
  Serious: No
  Sender: MERZ
  Company Number: US-MRZWEB-2025100000059

PATIENT

DRUGS (7)
  1. XEOMIN [Suspect]
     Active Substance: INCOBOTULINUMTOXINA
     Indication: Neuromuscular blocking therapy
     Dosage: 50 INTERNATIONAL UNIT
     Route: 030
     Dates: start: 20250812, end: 20250812
  2. XEOMIN [Suspect]
     Active Substance: INCOBOTULINUMTOXINA
     Indication: Skin cosmetic procedure
     Dosage: 50 INTERNATIONAL UNIT
     Dates: start: 20250812, end: 20250812
  3. XEOMIN [Suspect]
     Active Substance: INCOBOTULINUMTOXINA
     Indication: Skin wrinkling
  4. XEOMIN [Suspect]
     Active Substance: INCOBOTULINUMTOXINA
     Indication: Skin cosmetic procedure
  5. XEOMIN [Suspect]
     Active Substance: INCOBOTULINUMTOXINA
     Indication: Skin cosmetic procedure
  6. XEOMIN [Suspect]
     Active Substance: INCOBOTULINUMTOXINA
     Indication: Pain in jaw
  7. XEOMIN [Suspect]
     Active Substance: INCOBOTULINUMTOXINA
     Indication: Headache

REACTIONS (3)
  - Drug ineffective [Unknown]
  - Product use in unapproved indication [Unknown]
  - Underdose [Unknown]

NARRATIVE: CASE EVENT DATE: 20250812
